FAERS Safety Report 10224931 (Version 1)
Quarter: 2014Q2

REPORT INFORMATION
  Report Type: Report from Study
  Country: CA (occurrence: CA)
  Receive Date: 20140609
  Receipt Date: 20140609
  Transmission Date: 20141212
  Serious: Yes (Other)
  Sender: FDA-Public Use
  Company Number: CA-BRISTOL-MYERS SQUIBB COMPANY-20878880

PATIENT
  Age: 55 Year
  Sex: Female

DRUGS (9)
  1. ORENCIA [Suspect]
     Indication: RHEUMATOID ARTHRITIS
     Route: 042
     Dates: start: 20080626
  2. FLURBIPROFEN [Concomitant]
  3. PREDNISONE [Concomitant]
  4. FLOVENT [Concomitant]
  5. SALBUTAMOL [Concomitant]
  6. CALCIUM + VITAMIN D [Concomitant]
  7. LOSEC [Concomitant]
  8. FOLIC ACID [Concomitant]
  9. METFORMIN [Concomitant]

REACTIONS (2)
  - Pneumonia [Unknown]
  - Diabetes mellitus [Unknown]
